FAERS Safety Report 5963141-3 (Version None)
Quarter: 2008Q4

REPORT INFORMATION
  Report Type: 
  Country: None (occurrence: None)
  Receive Date: 20081124
  Receipt Date: 20081111
  Transmission Date: 20090506
  Serious: Yes (Other)
  Sender: FDA-Public Use
  Company Number: JP-PURDUE-MAG_2008_0000745

PATIENT
  Age: 34 Year
  Sex: Female

DRUGS (3)
  1. THEOPHYLLINE [Suspect]
     Indication: ASTHMA
     Dosage: 400 MG, DAILY
     Route: 048
     Dates: start: 20081006, end: 20081007
  2. FLUTICASONE PROPIONATE W/SALMETEROL XINAFOATE [Concomitant]
     Route: 055
  3. MONTELUKAST SODIUM [Concomitant]
     Route: 048

REACTIONS (1)
  - ANAPHYLACTOID REACTION [None]
